FAERS Safety Report 10146442 (Version 1)
Quarter: 2014Q2

REPORT INFORMATION
  Report Type: Report from Study
  Country: US (occurrence: US)
  Receive Date: 20140501
  Receipt Date: 20140501
  Transmission Date: 20141212
  Serious: Yes (Other)
  Sender: FDA-Public Use
  Company Number: US-ACTELION-A-NJ2014-98120

PATIENT
  Age: 52 Year
  Sex: Female

DRUGS (3)
  1. VENTAVIS [Suspect]
     Indication: SYSTEMIC SCLEROSIS
     Dosage: 5 MCG, UNK
     Route: 055
     Dates: start: 20090416
  2. LETAIRIS [Suspect]
     Dosage: 10 MG, OD
     Dates: start: 20080610
  3. REVATIO [Concomitant]

REACTIONS (2)
  - Sclerodactylia [Unknown]
  - Treatment noncompliance [Unknown]
